FAERS Safety Report 15899818 (Version 6)
Quarter: 2021Q1

REPORT INFORMATION
  Report Type: Spontaneous
  Country: US (occurrence: US)
  Receive Date: 20190201
  Receipt Date: 20210316
  Transmission Date: 20210419
  Serious: No
  Sender: FDA-Public Use
  Company Number: US-PFIZER INC-2019037710

PATIENT
  Age: 59 Year
  Sex: Female
  Weight: 101.6 kg

DRUGS (2)
  1. PREDNISONE. [Concomitant]
     Active Substance: PREDNISONE
     Dosage: UNK
  2. XELJANZ XR [Suspect]
     Active Substance: TOFACITINIB CITRATE
     Indication: RHEUMATOID ARTHRITIS
     Dosage: 11 MG, DAILY
     Route: 048
     Dates: start: 2017

REACTIONS (4)
  - Product dose omission issue [Unknown]
  - Hypoacusis [Unknown]
  - Illness [Unknown]
  - Asthma [Recovering/Resolving]

NARRATIVE: CASE EVENT DATE: 2019
